FAERS Safety Report 15700904 (Version 1)
Quarter: 2018Q4

REPORT INFORMATION
  Report Type: Spontaneous
  Country: US (occurrence: US)
  Receive Date: 20181207
  Receipt Date: 20181207
  Transmission Date: 20190205
  Serious: No
  Sender: FDA-Public Use
  Company Number: US-LEADING PHARMA, LLC-2059836

PATIENT
  Age: 79 Year
  Sex: Female

DRUGS (1)
  1. FUROSEMIDE. [Suspect]
     Active Substance: FUROSEMIDE
     Indication: OEDEMA
     Route: 048

REACTIONS (4)
  - Drug ineffective [Recovered/Resolved]
  - Oedema [Recovered/Resolved]
  - Product substitution issue [Recovered/Resolved]
  - Weight increased [Recovered/Resolved]
